FAERS Safety Report 6075104-0 (Version None)
Quarter: 2009Q1

REPORT INFORMATION
  Report Type: 
  Country: None (occurrence: None)
  Receive Date: 20090210
  Receipt Date: 20090210
  Transmission Date: 20090719
  Serious: Yes (Hospitalization)
  Sender: FDA-Public Use
  Company Number: None

PATIENT
  Age: 43 Year
  Sex: Male
  Weight: 131.5 kg

DRUGS (2)
  1. ACETAMINOPHEN AND HYDROCODONE BITARTRATE [Suspect]
     Indication: PAIN
     Dosage: 1 TAB PRN PO
     Route: 048
     Dates: start: 20090129, end: 20090204
  2. LORAZEPAM [Suspect]
     Indication: ANXIETY
     Dosage: 0.5 MG QID PO
     Route: 048
     Dates: start: 20090122, end: 20090204

REACTIONS (1)
  - MENTAL STATUS CHANGES [None]
